FAERS Safety Report 7502080-3 (Version None)
Quarter: 2011Q2

REPORT INFORMATION
  Report Type: 
  Country: None (occurrence: None)
  Receive Date: 20110525
  Receipt Date: 20101124
  Transmission Date: 20111010
  Serious: No
  Sender: FDA-Public Use
  Company Number: A0897364A

PATIENT
  Age: 78 Year
  Sex: Female
  Weight: 87.3 kg

DRUGS (4)
  1. ALBUTEROL SULFATE AUTOHALER [Suspect]
     Route: 065
  2. UNSPECIFIED MEDICATION [Suspect]
     Route: 065
  3. TOVIAZ [Suspect]
     Indication: URINARY INCONTINENCE
     Dosage: 4MG PER DAY
     Route: 048
     Dates: start: 20090101
  4. UNSPECIFIED MEDICATION [Concomitant]

REACTIONS (5)
  - THYROID DISORDER [None]
  - DRY MOUTH [None]
  - DRUG INEFFECTIVE [None]
  - CONSTIPATION [None]
  - OROPHARYNGEAL PAIN [None]
